FAERS Safety Report 4275512-4 (Version None)
Quarter: 2004Q1

REPORT INFORMATION
  Report Type: 
  Country: None (occurrence: None)
  Receive Date: 20040121
  Receipt Date: 20040113
  Transmission Date: 20041129
  Serious: Yes (Other)
  Sender: FDA-Public Use
  Company Number: CA-GLAXOSMITHKLINE-A0493760A

PATIENT

DRUGS (1)
  1. PAXIL [Suspect]

REACTIONS (1)
  - DEPENDENCE [None]
